FAERS Safety Report 6047048-1 (Version None)
Quarter: 2009Q1

REPORT INFORMATION
  Report Type: 
  Country: None (occurrence: None)
  Receive Date: 20090122
  Receipt Date: 20090113
  Transmission Date: 20090719
  Serious: Yes (Hospitalization, Other)
  Sender: FDA-Public Use
  Company Number: US-JNJFOC-20090104911

PATIENT
  Sex: Male
  Weight: 36.9 kg

DRUGS (14)
  1. REMICADE [Suspect]
     Route: 042
  2. REMICADE [Suspect]
     Route: 042
  3. REMICADE [Suspect]
     Indication: INFLAMMATORY BOWEL DISEASE
     Route: 042
  4. OMNICEF [Concomitant]
  5. LEXAPRO [Concomitant]
  6. FOLIC ACID [Concomitant]
  7. M.V.I. [Concomitant]
  8. ZOFRAN [Concomitant]
  9. NALTREXONE [Concomitant]
  10. ZANTAC [Concomitant]
  11. COUMADIN [Concomitant]
  12. LACTOSE [Concomitant]
  13. ENSURE [Concomitant]
  14. FLORASTOR [Concomitant]

REACTIONS (1)
  - INFLAMMATORY BOWEL DISEASE [None]
